FAERS Safety Report 11642552 (Version 8)
Quarter: 2016Q2

REPORT INFORMATION
  Report Type: Report from Study
  Country: IN (occurrence: IN)
  Receive Date: 20151020
  Receipt Date: 20160505
  Transmission Date: 20160815
  Serious: Yes (Death, Hospitalization, Disabling)
  Sender: FDA-Public Use
  Company Number: IN-AMGEN-INDCT2015108547

PATIENT
  Age: 60 Year
  Sex: Female
  Weight: 46 kg

DRUGS (18)
  1. FOL [Concomitant]
     Indication: SUPPLEMENTATION THERAPY
     Dosage: 5 MG, UNK
     Dates: start: 20150715, end: 20151013
  2. NORMAL SALINE [Concomitant]
     Active Substance: SODIUM CHLORIDE
     Indication: VEHICLE SOLUTION USE
     Dosage: 500-1200 ML, UNK
     Dates: start: 20150714, end: 20151017
  3. MANNITOL. [Concomitant]
     Active Substance: MANNITOL
     Indication: PROPHYLAXIS
     Dosage: 100 ML, UNK
     Dates: start: 20150714, end: 20151005
  4. POTASSIUM [Concomitant]
     Active Substance: POTASSIUM
     Indication: PROPHYLAXIS
     Dosage: 10 ML, UNK
     Dates: start: 20150714, end: 20151005
  5. MAGNESIUM SULPHATE [Concomitant]
     Active Substance: MAGNESIUM SULFATE
     Indication: PROPHYLAXIS
     Dosage: 2 ML, UNK
     Dates: start: 20150714, end: 20151005
  6. APREPITANT. [Concomitant]
     Active Substance: APREPITANT
     Indication: PROPHYLAXIS
     Dosage: 80-125 MG, UNK
     Dates: start: 20150714, end: 20151007
  7. NORMAL SALINE [Concomitant]
     Active Substance: SODIUM CHLORIDE
     Indication: ASTHENIA
  8. DOMPERIDONE [Concomitant]
     Active Substance: DOMPERIDONE
     Indication: PROPHYLAXIS
     Dosage: 10 MG, UNK
     Dates: start: 20150715, end: 20151008
  9. DEXAMETHASONE. [Concomitant]
     Active Substance: DEXAMETHASONE
     Indication: PROPHYLAXIS
     Dosage: 4-16 MG, UNK
     Dates: start: 20150714, end: 20151027
  10. RANITIDINE. [Concomitant]
     Active Substance: RANITIDINE
     Indication: PROPHYLAXIS
     Dosage: 50 MG, UNK
     Dates: start: 20150714, end: 20151005
  11. DARBEPOETIN ALFA [Suspect]
     Active Substance: DARBEPOETIN ALFA
     Indication: ANAEMIA OF MALIGNANT DISEASE
     Dosage: UNK
     Route: 065
     Dates: start: 20150714, end: 20151005
  12. PANTOPRAZOLE [Concomitant]
     Active Substance: PANTOPRAZOLE SODIUM
     Indication: ABDOMINAL PAIN UPPER
  13. VITCOFOL [Concomitant]
     Indication: SUPPLEMENTATION THERAPY
     Dosage: 2 ML, UNK
     Dates: start: 20150714, end: 20151013
  14. PEMETREXED [Concomitant]
     Active Substance: PEMETREXED
     Dosage: 660 MG, UNK
     Dates: start: 20150714
  15. CISPLATIN. [Concomitant]
     Active Substance: CISPLATIN
     Dosage: 100 MG, UNK
     Dates: start: 20150714, end: 20151026
  16. PANTOPRAZOLE [Concomitant]
     Active Substance: PANTOPRAZOLE SODIUM
     Indication: PROPHYLAXIS
     Dosage: 40 MG, UNK
     Dates: start: 20150714, end: 20151027
  17. DEXAMETHASONE. [Concomitant]
     Active Substance: DEXAMETHASONE
     Indication: HEMIPLEGIA
  18. PALONOSETRON [Concomitant]
     Active Substance: PALONOSETRON
     Indication: PROPHYLAXIS
     Dosage: 0.25 MG, UNK
     Dates: start: 20150714, end: 20151005

REACTIONS (2)
  - Non-small cell lung cancer [Fatal]
  - Hemiplegia [Not Recovered/Not Resolved]

NARRATIVE: CASE EVENT DATE: 20151013
